FAERS Safety Report 8280160-5 (Version None)
Quarter: 2012Q2

REPORT INFORMATION
  Report Type: 
  Country: None (occurrence: None)
  Receive Date: 20120412
  Receipt Date: 20120410
  Transmission Date: 20120825
  Serious: Yes (Other)
  Sender: FDA-Public Use
  Company Number: US-MERCK-1203USA00168

PATIENT
  Age: 57 Year
  Sex: Female
  Weight: 86 kg

DRUGS (2)
  1. SINGULAIR [Suspect]
     Indication: ASTHMA
     Route: 048
     Dates: start: 20120216, end: 20120218
  2. PROAIR HFA [Concomitant]
     Indication: ASTHMA
     Route: 065

REACTIONS (11)
  - APHASIA [None]
  - CHEST PAIN [None]
  - CHEST DISCOMFORT [None]
  - MUSCLE SPASMS [None]
  - FATIGUE [None]
  - ASTHENIA [None]
  - ASTHMA [None]
  - DISORIENTATION [None]
  - HEADACHE [None]
  - HYPOAESTHESIA ORAL [None]
  - DIZZINESS [None]
